FAERS Safety Report 25831773 (Version 1)
Quarter: 2025Q3

REPORT INFORMATION
  Report Type: Spontaneous
  Country: US (occurrence: US)
  Receive Date: 20250922
  Receipt Date: 20250922
  Transmission Date: 20251021
  Serious: Yes (Hospitalization)
  Sender: BIOVITRUM
  Company Number: US-BIOVITRUM-2025-US-012764

PATIENT
  Age: 87 Year
  Sex: Male
  Weight: 94.2 kg

DRUGS (1)
  1. PACRITINIB [Suspect]
     Active Substance: PACRITINIB
     Indication: Cutaneous T-cell lymphoma refractory
     Route: 048
     Dates: start: 20250225

REACTIONS (4)
  - Urinary tract infection [Unknown]
  - Off label use [Unknown]
  - Renal failure [Unknown]
  - Condition aggravated [Unknown]

NARRATIVE: CASE EVENT DATE: 20250225
